FAERS Safety Report 6939853-1 (Version None)
Quarter: 2010Q3

REPORT INFORMATION
  Report Type: 
  Country: None (occurrence: None)
  Receive Date: 20100825
  Receipt Date: 20100812
  Transmission Date: 20110219
  Serious: No
  Sender: FDA-Public Use
  Company Number: US-JNJFOC-20100805997

PATIENT
  Sex: Male
  Weight: 71.67 kg

DRUGS (4)
  1. FENTANYL CITRATE [Suspect]
     Indication: BACK PAIN
     Route: 062
  2. SNADOZ FENTANYL TRANSDERMAL SYSTEM [Suspect]
     Indication: BACK PAIN
     Dosage: NDC#0781-7113-55
     Route: 062
  3. SNADOZ FENTANYL TRANSDERMAL SYSTEM [Suspect]
     Dosage: NDC#0781-7114-55
     Route: 062
  4. MORPHINE [Concomitant]
     Indication: BREAKTHROUGH PAIN
     Dosage: 15MG AS NEEDED 4 TABS DAILY ORAL
     Route: 048

REACTIONS (12)
  - DIZZINESS [None]
  - DRUG ADMINISTERED AT INAPPROPRIATE SITE [None]
  - DRUG DOSE OMISSION [None]
  - INSOMNIA [None]
  - IRRITABILITY [None]
  - NAUSEA [None]
  - OVERDOSE [None]
  - PAIN [None]
  - PALPITATIONS [None]
  - PRODUCT QUALITY ISSUE [None]
  - THERAPY CESSATION [None]
  - WRONG TECHNIQUE IN DRUG USAGE PROCESS [None]
